FAERS Safety Report 22042585 (Version 1)
Quarter: 2023Q1

REPORT INFORMATION
  Report Type: Spontaneous
  Country: CA (occurrence: CA)
  Receive Date: 20230228
  Receipt Date: 20230228
  Transmission Date: 20230418
  Serious: Yes (Hospitalization, Other)
  Sender: FDA-Public Use
  Company Number: CA-SUN PHARMACEUTICAL INDUSTRIES LTD-2023R1-380687

PATIENT
  Age: 78 Year
  Sex: Male

DRUGS (3)
  1. CAPECITABINE [Suspect]
     Active Substance: CAPECITABINE
     Indication: Transitional cell carcinoma
     Dosage: 800 MILLIGRAM/SQ. METER, BID
     Route: 065
  2. CARBOPLATIN [Suspect]
     Active Substance: CARBOPLATIN
     Indication: Transitional cell carcinoma
     Dosage: UNK 4 AREA UNDER THE CURVE
     Route: 065
  3. TRASTUZUMAB [Suspect]
     Active Substance: TRASTUZUMAB
     Indication: Transitional cell carcinoma
     Dosage: UNK 6 MG/KG AFTER A FIRST CYCLE AT 8MG/KG) EVERY 3 WEEKS
     Route: 065

REACTIONS (3)
  - Acute myocardial infarction [Recovered/Resolved]
  - Cardiotoxicity [Recovered/Resolved]
  - Toxicity to various agents [Unknown]
